FAERS Safety Report 8352647-8 (Version None)
Quarter: 2012Q2

REPORT INFORMATION
  Report Type: 
  Country: None (occurrence: None)
  Receive Date: 20120509
  Receipt Date: 20120427
  Transmission Date: 20120825
  Serious: Yes (Other)
  Sender: FDA-Public Use
  Company Number: 2012000110

PATIENT
  Age: 87 Year
  Sex: Female

DRUGS (7)
  1. ACEON [Suspect]
  2. AMLODIPINE [Concomitant]
  3. NOVOLOG [Concomitant]
  4. HYDROCHLOROTHIAZIDE [Concomitant]
  5. ACEON [Suspect]
     Indication: HYPERTENSION
     Dosage: 5 MG, QD, ORAL, 5 MG, QD
     Route: 048
     Dates: start: 20120228, end: 20120307
  6. ACEON [Suspect]
     Indication: HYPERTENSION
     Dosage: 5 MG, QD, ORAL, 5 MG, QD
     Route: 048
     Dates: start: 20070101, end: 20120227
  7. ACEON [Suspect]
     Indication: HYPERTENSION
     Dosage: 5 MG, QD, ORAL, 5 MG, QD
     Route: 048
     Dates: start: 20120301, end: 20120301

REACTIONS (4)
  - PRODUCT COUNTERFEIT [None]
  - HEADACHE [None]
  - NAUSEA [None]
  - DRUG INEFFECTIVE [None]
